FAERS Safety Report 6741428-4 (Version None)
Quarter: 2010Q2

REPORT INFORMATION
  Report Type: 
  Country: None (occurrence: None)
  Receive Date: 20100526
  Receipt Date: 20100514
  Transmission Date: 20101027
  Serious: Yes (Other)
  Sender: FDA-Public Use
  Company Number: US-BAYER-200936232NA

PATIENT
  Age: 51 Year
  Sex: Male
  Weight: 77 kg

DRUGS (30)
  1. MAGNEVIST [Suspect]
     Indication: NUCLEAR MAGNETIC RESONANCE IMAGING
     Dates: start: 20060519, end: 20060519
  2. MAGNEVIST [Suspect]
     Dates: start: 20061013, end: 20061013
  3. MAGNEVIST [Suspect]
     Dates: start: 20061017, end: 20061017
  4. OMNISCAN [Suspect]
     Indication: FISTULOGRAM
     Dosage: AS USED: 50 ML
     Route: 042
     Dates: start: 20060804, end: 20060804
  5. OMNISCAN [Suspect]
     Dosage: AS USED: 20 ML
     Route: 042
     Dates: start: 20060805, end: 20060805
  6. OPTIMARK [Suspect]
     Indication: DRUG USE FOR UNKNOWN INDICATION
  7. MULTIHANCE [Suspect]
     Indication: DRUG USE FOR UNKNOWN INDICATION
  8. PROHANCE [Suspect]
     Indication: DRUG USE FOR UNKNOWN INDICATION
  9. VENOFER [Concomitant]
     Dosage: AS USED: 100 MG
     Route: 042
     Dates: start: 20061016
  10. ATENOLOL [Concomitant]
  11. COUMADIN [Concomitant]
  12. CLONIDINE [Concomitant]
  13. PROCARDIA XL [Concomitant]
  14. LIPITOR [Concomitant]
  15. STARLIX [Concomitant]
  16. ACCUPRIL [Concomitant]
  17. COREG [Concomitant]
  18. LANTUS [Concomitant]
  19. ZYVOX [Concomitant]
  20. ACTOS [Concomitant]
  21. VANCOMYCIN [Concomitant]
  22. LASIX [Concomitant]
  23. PROCRIT [Concomitant]
  24. RENAGEL [Concomitant]
     Dosage: DOSE: 800-1200MG
  25. ARANESP [Concomitant]
  26. FERROUS SULFATE TAB [Concomitant]
     Dosage: TOTAL DAILY DOSE: 325 MG
     Dates: start: 20060812
  27. K DUR [Concomitant]
  28. LYRICA [Concomitant]
  29. SYNTHROID [Concomitant]
  30. TRENTAL [Concomitant]
     Dosage: TOTAL DAILY DOSE: 1200 MG

REACTIONS (13)
  - EXTREMITY CONTRACTURE [None]
  - GENERAL PHYSICAL HEALTH DETERIORATION [None]
  - JOINT CONTRACTURE [None]
  - JOINT RANGE OF MOTION DECREASED [None]
  - JOINT STIFFNESS [None]
  - MYOSCLEROSIS [None]
  - NEPHROGENIC SYSTEMIC FIBROSIS [None]
  - OEDEMA [None]
  - OEDEMA PERIPHERAL [None]
  - PAIN [None]
  - QUADRIPARESIS [None]
  - SKIN HYPERTROPHY [None]
  - SKIN TIGHTNESS [None]
